FAERS Safety Report 5830775-6 (Version None)
Quarter: 2008Q3

REPORT INFORMATION
  Report Type: 
  Country: None (occurrence: None)
  Receive Date: 20080801
  Receipt Date: 20071116
  Transmission Date: 20090109
  Serious: No
  Sender: FDA-Public Use
  Company Number: US-BRISTOL-MYERS SQUIBB COMPANY-13985502

PATIENT
  Age: 68 Year
  Sex: Female
  Weight: 29 kg

DRUGS (2)
  1. COUMADIN [Suspect]
     Indication: THROMBOSIS
     Route: 048
     Dates: start: 20070101
  2. SYNTHROID [Concomitant]

REACTIONS (1)
  - DYSPHAGIA [None]
